FAERS Safety Report 9398802 (Version 2)
Quarter: 2016Q1

REPORT INFORMATION
  Report Type: Spontaneous
  Country: IT (occurrence: IT)
  Receive Date: 20130713
  Receipt Date: 20160328
  Transmission Date: 20160526
  Serious: Yes (Death, Congenital Anomaly)
  Sender: FDA-Public Use
  Company Number: IT-JNJFOC-20130708200

PATIENT

DRUGS (4)
  1. ZYRTEC [Suspect]
     Active Substance: CETIRIZINE HYDROCHLORIDE
     Indication: ROSACEA
     Dosage: MOTHER WAS ON THERAPY OF SUSPECT DRUG. DOSING DETAILS ARE OF MOTHER.
     Route: 064
     Dates: start: 20130424, end: 20130429
  2. ZYRTEC [Suspect]
     Active Substance: CETIRIZINE HYDROCHLORIDE
     Route: 064
  3. FOLIC ACID. [Concomitant]
     Active Substance: FOLIC ACID
     Indication: PRODUCT USED FOR UNKNOWN INDICATION
     Route: 064
  4. AMBRAMYCIN [Suspect]
     Active Substance: TETRACYCLINE HYDROCHLORIDE
     Indication: ROSACEA
     Route: 064
     Dates: start: 20130424, end: 20130429

REACTIONS (2)
  - Foetal exposure during pregnancy [Fatal]
  - Foetal malformation [Fatal]

NARRATIVE: CASE EVENT DATE: 2013
